FAERS Safety Report 9841477 (Version 1)
Quarter: 2013Q4

REPORT INFORMATION
  Report Type: Spontaneous
  Country: US (occurrence: None)
  Receive Date: 20131211
  Receipt Date: 20131211
  Transmission Date: 20140711
  Serious: Yes (Other)
  Sender: FDA-Public Use
  Company Number: ALL1-2012-02165

PATIENT
  Age: 58 Year
  Sex: Male
  Weight: 80.7 kg

DRUGS (2)
  1. ADDERALL XR (AMPHETAMINE ASPARTATE, AMPHETAQMINE SULFATE, DEXTROAMPHETAMINE , SACCHARATE, DEXTROAMPHETAMINE SULFATE) [Suspect]
     Indication: OBSESSIVE-COMPULSIVE DISORDER
     Dosage: 10 MG, 1X/DAY: QD, ORAL
     Route: 048
     Dates: start: 2007, end: 2007
  2. ADDERALL XR (AMPHETAMINE ASPARTATE, AMPHETAQMINE SULFATE, DEXTROAMPHETAMINE , SACCHARATE, DEXTROAMPHETAMINE SULFATE) [Suspect]
     Indication: MENTAL DISORDER
     Dosage: 10 MG, 1X/DAY: QD, ORAL
     Route: 048
     Dates: start: 2007, end: 2007

REACTIONS (7)
  - Depression [None]
  - Ejaculation disorder [None]
  - Prostatomegaly [None]
  - Pain in extremity [None]
  - Insomnia [None]
  - Overdose [None]
  - Drug ineffective for unapproved indication [None]
